FAERS Safety Report 4485374-8 (Version None)
Quarter: 2004Q4

REPORT INFORMATION
  Report Type: 
  Country: None (occurrence: None)
  Receive Date: 20041025
  Receipt Date: 20041025
  Transmission Date: 20050328
  Serious: Yes (Life-Threatening, Disabling)
  Sender: FDA-Public Use
  Company Number: None

PATIENT
  Age: 81 Year
  Sex: Male
  Weight: 72.5755 kg

DRUGS (1)
  1. ZOCOR [Suspect]
     Dosage: DAILY

REACTIONS (4)
  - ASTHENIA [None]
  - HEPATIC FAILURE [None]
  - MYOPATHY [None]
  - PHARYNGOLARYNGEAL PAIN [None]
